FAERS Safety Report 20725137 (Version 1)
Quarter: 2022Q2

REPORT INFORMATION
  Report Type: Spontaneous
  Country: US (occurrence: US)
  Receive Date: 20220419
  Receipt Date: 20220419
  Transmission Date: 20220721
  Serious: No
  Sender: FDA-Public Use
  Company Number: US-PFIZER INC-202101302937

PATIENT
  Age: 52 Year
  Sex: Female
  Weight: 69.841 kg

DRUGS (15)
  1. IBRANCE [Suspect]
     Active Substance: PALBOCICLIB
     Indication: Breast cancer female
     Dosage: 100 MG, CYCLIC, (DAILY X 21 DAYS ON THEN 7 DAYS OFF)
     Route: 048
     Dates: start: 202109
  2. IBRANCE [Suspect]
     Active Substance: PALBOCICLIB
     Dosage: 100 MG, 1X/DAY (1 DAILY FOR 21 DAYS)
     Dates: start: 202109
  3. VITAMIN B12 [Concomitant]
     Active Substance: CYANOCOBALAMIN
     Dosage: 1000 UG
  4. ZINC [Concomitant]
     Active Substance: ZINC
     Dosage: 30 MG
  5. VITAMIN D3 [Concomitant]
     Active Substance: CHOLECALCIFEROL
     Dosage: UNK, (100000/G)
  6. COENZYME Q10 [Concomitant]
     Active Substance: DIETARY SUPPLEMENT\UBIDECARENONE
     Dosage: 100 MG
  7. DIETARY SUPPLEMENT [Concomitant]
     Active Substance: DIETARY SUPPLEMENT
     Dosage: 600 MG
  8. ATORVASTATIN CALCIUM [Concomitant]
     Active Substance: ATORVASTATIN CALCIUM
     Dosage: 40 MG
  9. LETROZOLE [Concomitant]
     Active Substance: LETROZOLE
     Dosage: 2.5 MG
  10. VITAMIN B6 [Concomitant]
     Active Substance: PYRIDOXINE HYDROCHLORIDE
     Dosage: 100 MG
  11. ASPIRIN [Concomitant]
     Active Substance: ASPIRIN
     Dosage: UNK, (100% POWDER)
  12. THIAMINE HYDROCHLORIDE [Concomitant]
     Active Substance: THIAMINE HYDROCHLORIDE
     Dosage: 100 MG
  13. DOXYCYCLINE HYCLATE [Concomitant]
     Active Substance: DOXYCYCLINE HYCLATE
     Dosage: 100 MG
  14. METFORMIN HYDROCHLORIDE [Concomitant]
     Active Substance: METFORMIN HYDROCHLORIDE
     Dosage: UNK, (ER GASTRIC)
  15. CHOLECALCIFEROL\OMEGA-3 FATTY ACIDS [Concomitant]
     Active Substance: CHOLECALCIFEROL\OMEGA-3 FATTY ACIDS
     Dosage: UNK

REACTIONS (7)
  - White blood cell count decreased [Not Recovered/Not Resolved]
  - Tumour marker increased [Unknown]
  - Gingival pain [Unknown]
  - Eating disorder [Unknown]
  - Somnolence [Unknown]
  - Somnolence [Unknown]
  - Pain [Recovering/Resolving]
